FAERS Safety Report 21799582 (Version 1)
Quarter: 2022Q4

REPORT INFORMATION
  Report Type: Spontaneous
  Country: PT (occurrence: PT)
  Receive Date: 20221230
  Receipt Date: 20221230
  Transmission Date: 20230113
  Serious: Yes (Hospitalization)
  Sender: FDA-Public Use
  Company Number: PT-LUNDBECK-DKLU3055971

PATIENT
  Age: 55 Year
  Sex: Female

DRUGS (2)
  1. RISPERDAL [Suspect]
     Active Substance: RISPERIDONE
     Indication: Schizophrenia
     Route: 065
  2. ZUCLOPENTHIXOL [Suspect]
     Active Substance: ZUCLOPENTHIXOL
     Indication: Schizophrenia
     Route: 065

REACTIONS (7)
  - Energy increased [Recovered/Resolved]
  - Disinhibition [Recovered/Resolved]
  - Euphoric mood [Recovered/Resolved]
  - Psychomotor hyperactivity [Recovered/Resolved]
  - Mania [Recovered/Resolved]
  - Grandiosity [Recovered/Resolved]
  - Insomnia [Recovered/Resolved]
